FAERS Safety Report 9251464 (Version 1)
Quarter: 2013Q2

REPORT INFORMATION
  Report Type: Spontaneous
  Country: US (occurrence: US)
  Receive Date: 20130424
  Receipt Date: 20130424
  Transmission Date: 20140414
  Serious: Yes (Other)
  Sender: FDA-Public Use
  Company Number: US-JNJFOC-20130407332

PATIENT
  Sex: Female
  Weight: 72.58 kg

DRUGS (6)
  1. DURAGESIC [Suspect]
     Indication: FIBROMYALGIA
     Route: 062
  2. DURAGESIC [Suspect]
     Indication: FIBROMYALGIA
     Dosage: ABOUT 3 YEARS AGO
     Route: 062
  3. LYRICA [Suspect]
     Indication: FIBROMYALGIA
     Dosage: 2 YEARS AGO
     Route: 065
  4. LYRICA [Suspect]
     Indication: FIBROMYALGIA
     Route: 065
     Dates: start: 201303
  5. VICODIN [Suspect]
     Indication: FIBROMYALGIA
     Dosage: 7.5/750
     Route: 065
  6. BACLOFEN [Suspect]
     Indication: FIBROMYALGIA
     Dosage: 7.5/750
     Route: 065

REACTIONS (2)
  - Fibromyalgia [Unknown]
  - Systemic lupus erythematosus [Unknown]
